FAERS Safety Report 10259597 (Version 1)
Quarter: 2014Q2

REPORT INFORMATION
  Report Type: Spontaneous
  Country: BR (occurrence: BR)
  Receive Date: 20140625
  Receipt Date: 20140625
  Transmission Date: 20141212
  Serious: Yes (Other)
  Sender: FDA-Public Use
  Company Number: PHHY2014BR075111

PATIENT
  Age: 57 Year
  Sex: Female
  Weight: 70 kg

DRUGS (7)
  1. SIMVASTATIN SANDOZ [Suspect]
     Indication: BLOOD CHOLESTEROL INCREASED
     Dosage: 20 MG, QD
     Route: 048
     Dates: start: 201311, end: 20140611
  2. SIMVASTATIN SANDOZ [Suspect]
     Indication: BLOOD TRIGLYCERIDES INCREASED
  3. OMEGA 3 [Concomitant]
     Indication: BLOOD CHOLESTEROL
     Dosage: 2 DF, (FOR SIX MONTHS)
  4. OMEGA 3 [Concomitant]
     Indication: BLOOD TRIGLYCERIDES
  5. LEVOTHYROXINE [Concomitant]
     Dosage: 100 UG, QD
     Dates: start: 199701
  6. OMEPRAZOLE [Concomitant]
     Dosage: 40 MG, QD
  7. DIMETHICONE [Concomitant]
     Dosage: 2 DF, UNK
     Dates: start: 1994

REACTIONS (2)
  - Pain in extremity [Recovering/Resolving]
  - Insomnia [Recovering/Resolving]
